FAERS Safety Report 15355773 (Version 1)
Quarter: 2018Q3

REPORT INFORMATION
  Report Type: Spontaneous
  Country: US (occurrence: US)
  Receive Date: 20180830
  Receipt Date: 20180830
  Transmission Date: 20181010
  Serious: Yes (Death)
  Sender: FDA-Public Use
  Company Number: None

PATIENT
  Age: 32 Year
  Sex: Male
  Weight: 94 kg

DRUGS (6)
  1. PROTAMINE [Suspect]
     Active Substance: PROTAMINE
     Dosage: ?          OTHER FREQUENCY:ONE TIME;?
     Route: 042
     Dates: start: 20180507, end: 20180507
  2. VERSED [Concomitant]
     Active Substance: MIDAZOLAM HYDROCHLORIDE
     Dates: start: 20180507, end: 20180507
  3. LIDOCAINE. [Concomitant]
     Active Substance: LIDOCAINE
     Dates: start: 20180507, end: 20180507
  4. FENTANYL. [Concomitant]
     Active Substance: FENTANYL
     Dates: start: 20180507, end: 20180507
  5. PROPOFOL. [Concomitant]
     Active Substance: PROPOFOL
     Dates: start: 20180507, end: 20180507
  6. NORMAL SALINE [Concomitant]
     Active Substance: SODIUM CHLORIDE
     Dates: start: 20180507, end: 20180507

REACTIONS (1)
  - Cardiac arrest [None]

NARRATIVE: CASE EVENT DATE: 20180507
